FAERS Safety Report 23310415 (Version 1)
Quarter: 2023Q4

REPORT INFORMATION
  Report Type: Report from Study
  Country: NL (occurrence: NL)
  Receive Date: 20231218
  Receipt Date: 20231218
  Transmission Date: 20240110
  Serious: Yes (Death)
  Sender: FDA-Public Use
  Company Number: NL-VER-202300096

PATIENT
  Sex: Male

DRUGS (3)
  1. TRIPTORELIN PAMOATE [Suspect]
     Active Substance: TRIPTORELIN PAMOATE
     Indication: Prostate cancer
     Dosage: ??11.25 MG, 1.00 X PER 3 MONTHS
     Route: 030
     Dates: start: 20211209, end: 20211209
  2. TRIPTORELIN PAMOATE [Suspect]
     Active Substance: TRIPTORELIN PAMOATE
     Indication: Prostate cancer
     Dosage: 11.25 MG, 1.00 X PER 3 MONTHS
     Route: 030
     Dates: start: 20230607, end: 20230607
  3. TRIPTORELIN PAMOATE [Suspect]
     Active Substance: TRIPTORELIN PAMOATE
     Indication: Prostate cancer
     Dosage: ??11.25 MG, 1.00 X PER 3 MONTHS
     Route: 030
     Dates: start: 20230907, end: 20230907

REACTIONS (1)
  - Malignant neoplasm progression [Fatal]
